FAERS Safety Report 5416822-4 (Version None)
Quarter: 2007Q3

REPORT INFORMATION
  Report Type: 
  Country: None (occurrence: None)
  Receive Date: 20070816
  Receipt Date: 20070815
  Transmission Date: 20080115
  Serious: Yes (Life-Threatening, Hospitalization)
  Sender: FDA-Public Use
  Company Number: BR-ASTRAZENECA-2007UW19692

PATIENT
  Age: 61 Year
  Sex: Male
  Weight: 67 kg

DRUGS (9)
  1. ATACAND [Suspect]
     Route: 048
     Dates: start: 20010101
  2. DIGOXIN [Concomitant]
     Route: 048
  3. LEXOTAN [Concomitant]
     Route: 048
  4. DIVELOL [Concomitant]
     Route: 048
  5. BAMIFIX [Concomitant]
     Route: 048
  6. BURINEX [Concomitant]
     Route: 048
  7. MOTILIUM [Concomitant]
     Route: 048
  8. ASPIRIN [Concomitant]
     Route: 048
  9. COUMADIN [Concomitant]
     Route: 048

REACTIONS (4)
  - AORTIC ANEURYSM [None]
  - BLOOD PRESSURE DECREASED [None]
  - BRADYCARDIA [None]
  - CARDIAC ARREST [None]
